FAERS Safety Report 7633952-7 (Version None)
Quarter: 2011Q3

REPORT INFORMATION
  Report Type: 
  Country: None (occurrence: None)
  Receive Date: 20110725
  Receipt Date: 20110617
  Transmission Date: 20111222
  Serious: Yes (Death, Hospitalization, Other)
  Sender: FDA-Public Use
  Company Number: US-BAXTER-2010BH006190

PATIENT
  Age: 73 Year
  Sex: Male

DRUGS (26)
  1. CALCIUM CARBONATE [Concomitant]
     Indication: PRODUCT USED FOR UNKNOWN INDICATION
     Route: 065
  2. VITAMIN D [Concomitant]
     Indication: PRODUCT USED FOR UNKNOWN INDICATION
     Route: 065
  3. FERROUS SULFATE TAB [Concomitant]
     Indication: PRODUCT USED FOR UNKNOWN INDICATION
     Route: 065
  4. METOPROLOL TARTRATE [Concomitant]
     Indication: BLOOD PRESSURE MANAGEMENT
     Route: 048
  5. HEPARIN SODIUM INJECTION [Suspect]
     Indication: CATHETERISATION VENOUS
     Route: 040
     Dates: start: 20080229, end: 20080229
  6. HEPARIN SODIUM INJECTION [Suspect]
     Route: 040
     Dates: start: 20080204, end: 20080204
  7. HEPARIN SODIUM INJECTION [Suspect]
     Route: 040
     Dates: start: 20080204, end: 20080204
  8. LASIX [Concomitant]
     Indication: PRODUCT USED FOR UNKNOWN INDICATION
     Route: 065
  9. HEPARIN SODIUM 5,000 UNITS IN DEXTROSE 5% [Suspect]
     Route: 042
     Dates: start: 20080229, end: 20080301
  10. DEPO-TESTOSTERONE [Concomitant]
     Indication: PRODUCT USED FOR UNKNOWN INDICATION
     Route: 065
  11. HEPARIN SODIUM INJECTION [Suspect]
     Indication: INTRAVENOUS CATHETER MANAGEMENT
     Route: 040
     Dates: start: 20080229, end: 20080229
  12. HEPARIN SODIUM INJECTION [Suspect]
     Dosage: DOSE UNIT:UNKNOWN
     Route: 065
  13. HEPARIN SODIUM INJECTION [Suspect]
     Route: 058
     Dates: start: 20080204, end: 20080204
  14. HEPARIN SODIUM INJECTION [Suspect]
     Route: 058
     Dates: start: 20080204, end: 20080204
  15. HEPARIN SODIUM 5,000 UNITS IN DEXTROSE 5% [Suspect]
     Indication: PRODUCT USED FOR UNKNOWN INDICATION
     Route: 042
     Dates: start: 20080204, end: 20080201
  16. COZAAR [Concomitant]
     Indication: PRODUCT USED FOR UNKNOWN INDICATION
     Route: 065
  17. WARFARIN [Concomitant]
     Indication: PRODUCT USED FOR UNKNOWN INDICATION
     Route: 065
  18. HEPARIN SODIUM INJECTION [Suspect]
     Route: 040
     Dates: start: 20080229, end: 20080229
  19. LANOXIN [Concomitant]
     Indication: PRODUCT USED FOR UNKNOWN INDICATION
     Route: 048
  20. SLOW-K [Concomitant]
     Indication: PRODUCT USED FOR UNKNOWN INDICATION
     Route: 065
  21. HEPARIN SODIUM INJECTION [Suspect]
     Dosage: DOSE UNIT:UNKNOWN
     Route: 065
  22. ASPIRIN [Concomitant]
     Indication: PRODUCT USED FOR UNKNOWN INDICATION
     Route: 065
  23. TIOTROPIUM [Concomitant]
     Indication: PRODUCT USED FOR UNKNOWN INDICATION
     Route: 055
  24. HEPARIN SODIUM INJECTION [Suspect]
     Route: 040
     Dates: start: 20080229, end: 20080229
  25. NORNASE [Concomitant]
     Indication: PRODUCT USED FOR UNKNOWN INDICATION
     Route: 065
  26. POTASSIUM CHLORIDE [Concomitant]
     Indication: PRODUCT USED FOR UNKNOWN INDICATION
     Route: 048

REACTIONS (14)
  - CARDIAC FAILURE CONGESTIVE [None]
  - MENTAL STATUS CHANGES [None]
  - PLATELET COUNT DECREASED [None]
  - FAILURE TO THRIVE [None]
  - CHOLELITHIASIS [None]
  - HEPATIC FAILURE [None]
  - VENTRICULAR FIBRILLATION [None]
  - ASTHENIA [None]
  - RENAL FAILURE [None]
  - HEPATIC ENCEPHALOPATHY [None]
  - NEUROLOGICAL DECOMPENSATION [None]
  - HEPATIC CIRRHOSIS [None]
  - UNRESPONSIVE TO STIMULI [None]
  - BLOOD POTASSIUM INCREASED [None]
